FAERS Safety Report 6191109-3 (Version None)
Quarter: 2009Q2

REPORT INFORMATION
  Report Type: 
  Country: None (occurrence: None)
  Receive Date: 20090513
  Receipt Date: 20090513
  Transmission Date: 20091009
  Serious: Yes (Other)
  Sender: FDA-Public Use
  Company Number: None

PATIENT
  Age: 64 Year
  Sex: Female
  Weight: 79.3795 kg

DRUGS (1)
  1. TRAVATAN Z [Suspect]
     Indication: ABNORMAL SENSATION IN EYE
     Dosage: 1 DROP EACH EYE 1
     Route: 047
     Dates: start: 20080924, end: 20090410

REACTIONS (2)
  - BALANCE DISORDER [None]
  - DIZZINESS [None]
